FAERS Safety Report 21811433 (Version 1)
Quarter: 2023Q1

REPORT INFORMATION
  Report Type: Spontaneous
  Country: HR (occurrence: HR)
  Receive Date: 20230103
  Receipt Date: 20230103
  Transmission Date: 20230417
  Serious: Yes (Other)
  Sender: FDA-Public Use
  Company Number: HR-AMGEN-HRVSP2022191014

PATIENT
  Age: 16 Year
  Sex: Female

DRUGS (1)
  1. ADALIMUMAB [Suspect]
     Active Substance: ADALIMUMAB
     Indication: Hidradenitis
     Dosage: UNK
     Route: 065
     Dates: start: 2021

REACTIONS (6)
  - Pericarditis [Recovered/Resolved]
  - Therapy partial responder [Unknown]
  - Hypertension [Recovering/Resolving]
  - Memory impairment [Unknown]
  - Dyskinesia [Unknown]
  - Affective disorder [Unknown]

NARRATIVE: CASE EVENT DATE: 20210101
